FAERS Safety Report 20652997 (Version 1)
Quarter: 2022Q1

REPORT INFORMATION
  Report Type: Spontaneous
  Country: US (occurrence: US)
  Receive Date: 20220330
  Receipt Date: 20220330
  Transmission Date: 20220423
  Serious: Yes (Other)
  Sender: FDA-Public Use
  Company Number: US-AMGEN-USASP2022053872

PATIENT

DRUGS (1)
  1. PROLIA [Suspect]
     Active Substance: DENOSUMAB
     Indication: Osteoporosis
     Dosage: UNK
     Route: 065

REACTIONS (6)
  - Hip fracture [Unknown]
  - Pelvic fracture [Unknown]
  - Femur fracture [Unknown]
  - Spinal fracture [Unknown]
  - Fracture [Unknown]
  - Treatment noncompliance [Unknown]
